FAERS Safety Report 8640385 (Version 2)
Quarter: 2012Q4

REPORT INFORMATION
  Report Type: 
  Country: US (occurrence: US)
  Receive Date: 20120628
  Receipt Date: 20121115
  Transmission Date: 20130627
  Serious: No
  Sender: FDA-Public Use
  Company Number: US-PFIZER INC-2012152746

PATIENT
  Age: 54 Year
  Sex: Female
  Weight: 97.05 kg

DRUGS (6)
  1. LYRICA [Suspect]
     Indication: NERVE PAIN
     Dosage: 75 mg, 2x/day
     Route: 048
  2. LYRICA [Suspect]
     Indication: FIBROMYALGIA
     Dosage: 150 mg, 2x/day
     Route: 048
  3. LYRICA [Suspect]
     Dosage: 150 mg, 1x/day
     Route: 048
  4. LISINOPRIL [Concomitant]
     Indication: BLOOD PRESSURE HIGH
     Dosage: 5 mg, UNK
  5. HYDROCHLOROTHIAZIDE [Concomitant]
     Indication: BLOOD PRESSURE HIGH
     Dosage: 25 mg, UNK
  6. LORATADINE [Concomitant]
     Dosage: 10 mg, UNK

REACTIONS (6)
  - Withdrawal syndrome [Not Recovered/Not Resolved]
  - Headache [Not Recovered/Not Resolved]
  - Muscle spasms [Not Recovered/Not Resolved]
  - Hot flush [Not Recovered/Not Resolved]
  - Neuralgia [Not Recovered/Not Resolved]
  - Accident at work [Unknown]
